FAERS Safety Report 17123731 (Version 1)
Quarter: 2019Q4

REPORT INFORMATION
  Report Type: Spontaneous
  Country: FR (occurrence: FR)
  Receive Date: 20191206
  Receipt Date: 20191206
  Transmission Date: 20200122
  Serious: Yes (Death)
  Sender: FDA-Public Use
  Company Number: FR-MYLANLABS-2019M1120576

PATIENT
  Age: 97 Year
  Sex: Male

DRUGS (2)
  1. TRAMADOL. [Suspect]
     Active Substance: TRAMADOL
     Indication: PAIN
     Dosage: 300 MILLIGRAM, QD
     Route: 048
     Dates: start: 20190713, end: 20190718
  2. PREVISCAN                          /00789001/ [Interacting]
     Active Substance: FLUINDIONE
     Indication: ATRIAL FIBRILLATION
     Dosage: 0.5 DOSAGE FORM, QD
     Route: 048
     Dates: end: 20190718

REACTIONS (2)
  - Drug interaction [Unknown]
  - Haemorrhagic stroke [Fatal]
